FAERS Safety Report 11732409 (Version 1)
Quarter: 2015Q4

REPORT INFORMATION
  Report Type: Spontaneous
  Country: US (occurrence: US)
  Receive Date: 20151110
  Receipt Date: 20151110
  Transmission Date: 20160304
  Serious: No
  Sender: FDA-Public Use
  Company Number: US-ELI_LILLY_AND_COMPANY-US201204005482

PATIENT
  Age: 61 Year
  Sex: Female

DRUGS (1)
  1. FORTEO [Suspect]
     Active Substance: TERIPARATIDE
     Indication: OSTEOPOROSIS
     Dosage: 20 UG, QD
     Dates: start: 20110526

REACTIONS (15)
  - Toothache [Unknown]
  - Stomatitis [Unknown]
  - Dysphagia [Unknown]
  - Discomfort [Unknown]
  - Tooth abscess [Unknown]
  - Epistaxis [Unknown]
  - Dental caries [Unknown]
  - Glossodynia [Unknown]
  - Tooth fracture [Unknown]
  - Tooth repair [Unknown]
  - Tooth infection [Unknown]
  - Glossitis [Unknown]
  - Swollen tongue [Unknown]
  - Oral pain [Unknown]
  - Endodontic procedure [Unknown]

NARRATIVE: CASE EVENT DATE: 201204
